FAERS Safety Report 8672580 (Version 3)
Quarter: 2012Q4

REPORT INFORMATION
  Report Type: Report from Study
  Country: ES (occurrence: ES)
  Receive Date: 20120719
  Receipt Date: 20121109
  Transmission Date: 20130627
  Serious: Yes (Other)
  Sender: FDA-Public Use
  Company Number: ES-CELGENEUS-144-21880-12071056

PATIENT
  Age: 63 Year
  Sex: Male
  Weight: 67 kg

DRUGS (9)
  1. REVLIMID [Suspect]
     Indication: MULTIPLE MYELOMA
     Dosage: 25 Milligram
     Route: 048
     Dates: start: 20100628, end: 20100718
  2. REVLIMID [Suspect]
     Dosage: 25 Milligram
     Route: 048
     Dates: start: 20100726, end: 20100815
  3. REVLIMID [Suspect]
     Dosage: 25 Milligram
     Route: 048
     Dates: start: 20100825, end: 20100915
  4. REVLIMID [Suspect]
     Dosage: 25 Milligram
     Route: 048
     Dates: start: 20100923, end: 20101014
  5. DEXAMETHASONE [Concomitant]
     Indication: MULTIPLE MYELOMA
     Dosage: 160 Milligram
     Route: 048
     Dates: start: 20100628, end: 20100725
  6. DEXAMETHASONE [Concomitant]
     Dosage: 160 Milligram
     Route: 048
     Dates: start: 20100726, end: 20100824
  7. DEXAMETHASONE [Concomitant]
     Dosage: 160 Milligram
     Route: 048
     Dates: start: 20100825, end: 20100922
  8. DEXAMETHASONE [Concomitant]
     Dosage: 160 Milligram
     Route: 048
     Dates: start: 20100923, end: 20101014
  9. ASPIRINE [Concomitant]
     Indication: THROMBOSIS PROPHYLAXIS
     Dosage: 100 Milligram
     Route: 065

REACTIONS (1)
  - Bladder transitional cell carcinoma [Recovered/Resolved]
